FAERS Safety Report 22357456 (Version 3)
Quarter: 2025Q1

REPORT INFORMATION
  Report Type: Spontaneous
  Country: JP (occurrence: JP)
  Receive Date: 20230524
  Receipt Date: 20250129
  Transmission Date: 20250408
  Serious: Yes (Hospitalization)
  Sender: ROCHE
  Company Number: JP-ROCHE-3354252

PATIENT
  Age: 79 Year
  Sex: Male

DRUGS (8)
  1. RITUXIMAB [Suspect]
     Active Substance: RITUXIMAB
     Indication: Diffuse large B-cell lymphoma
     Route: 040
     Dates: start: 202111
  2. TOZINAMERAN [Interacting]
     Active Substance: TOZINAMERAN
     Indication: COVID-19 prophylaxis
     Route: 065
  3. CYCLOPHOSPHAMIDE [Interacting]
     Active Substance: CYCLOPHOSPHAMIDE
     Indication: Diffuse large B-cell lymphoma
     Route: 065
     Dates: start: 202111
  4. DOXORUBICIN [Interacting]
     Active Substance: DOXORUBICIN
     Indication: Diffuse large B-cell lymphoma
     Route: 065
     Dates: start: 202111
  5. VINCRISTINE [Interacting]
     Active Substance: VINCRISTINE
     Indication: Diffuse large B-cell lymphoma
     Route: 065
     Dates: start: 202111
  6. PREDNISOLONE [Interacting]
     Active Substance: PREDNISOLONE
     Indication: Diffuse large B-cell lymphoma
     Route: 065
     Dates: start: 202111
  7. PIPERACILLIN [Concomitant]
     Active Substance: PIPERACILLIN
  8. TAZOBACTAM [Concomitant]
     Active Substance: TAZOBACTAM

REACTIONS (3)
  - Post-acute COVID-19 syndrome [Recovered/Resolved]
  - Humoral immune defect [Unknown]
  - Vaccine interaction [Unknown]
